FAERS Safety Report 8796315 (Version 1)
Quarter: 2012Q4

REPORT INFORMATION
  Report Type: 
  Country: US (occurrence: US)
  Receive Date: 20120919
  Receipt Date: 20120919
  Transmission Date: 20130627
  Serious: Yes (Death)
  Sender: FDA-Public Use
  Company Number: US-PFIZER INC-2012228319

PATIENT
  Age: 60 Year
  Sex: Male

DRUGS (1)
  1. SULFADIAZINE [Suspect]
     Indication: PEMPHIGUS
     Dosage: UNK
     Route: 061

REACTIONS (8)
  - Megacolon [Fatal]
  - Clostridium difficile infection [Fatal]
  - Tachycardia [None]
  - Colitis [None]
  - Renal failure chronic [None]
  - Procedural hypotension [None]
  - Acute respiratory distress syndrome [None]
  - Multi-organ failure [None]
